FAERS Safety Report 5062493-9 (Version None)
Quarter: 2006Q3

REPORT INFORMATION
  Report Type: 
  Country: None (occurrence: None)
  Receive Date: 20060721
  Receipt Date: 20060630
  Transmission Date: 20061208
  Serious: Yes (Hospitalization)
  Sender: FDA-Public Use
  Company Number: 2006RR-02885

PATIENT
  Age: 51 Year
  Sex: Female

DRUGS (11)
  1. SIMVASTATIN FAMILY (SIMVASTATIN )TABLET, 20 MG [Suspect]
     Indication: HYPERLIPIDAEMIA
     Dosage: SEE IMAGE
     Route: 048
     Dates: start: 19990601
  2. SIMVASTATIN FAMILY (SIMVASTATIN )TABLET, 20 MG [Suspect]
     Indication: HYPERLIPIDAEMIA
     Dosage: SEE IMAGE
     Route: 048
     Dates: start: 19991001
  3. TACROLIMUS (TACROLIMUS), 1MG [Suspect]
     Indication: IMMUNOSUPPRESSION
     Dosage: SEE IMAGE
     Dates: start: 19990601
  4. FUSIDIC ACID [Suspect]
     Indication: HYPERLIPIDAEMIA
     Dosage: 500 MG, TID,
     Dates: start: 19990601
  5. AZATHIOPRINE SODIUM [Concomitant]
  6. APREDNISLONE [Concomitant]
  7. FELODIPINE [Concomitant]
  8. CITALOPRAM (CITALOPRAM) TABLET [Concomitant]
  9. ASPIRIN [Concomitant]
  10. TACROLIMUS [Concomitant]
  11. INSULIN [Concomitant]

REACTIONS (6)
  - COMPLICATIONS OF TRANSPLANTED KIDNEY [None]
  - DRUG INTERACTION [None]
  - OSTEOMYELITIS [None]
  - RENAL FAILURE ACUTE [None]
  - RHABDOMYOLYSIS [None]
  - SOFT TISSUE INFECTION [None]
